FAERS Safety Report 20660329 (Version 3)
Quarter: 2022Q2

REPORT INFORMATION
  Report Type: Report from Study
  Country: US (occurrence: US)
  Receive Date: 20220331
  Receipt Date: 20220505
  Transmission Date: 20220720
  Serious: Yes (Hospitalization)
  Sender: FDA-Public Use
  Company Number: US-TG THERAPEUTICS INC.-TGT002516

PATIENT
  Age: 61 Year
  Sex: Male
  Weight: 59.864 kg

DRUGS (4)
  1. UBLITUXIMAB [Suspect]
     Active Substance: UBLITUXIMAB
     Indication: Follicular lymphoma
     Dosage: 900 MILLIGRAM, Q3M
     Dates: start: 20201216, end: 20211025
  2. UBLITUXIMAB [Suspect]
     Active Substance: UBLITUXIMAB
     Indication: Nodal marginal zone B-cell lymphoma
  3. UMBRALISIB [Suspect]
     Active Substance: UMBRALISIB
     Indication: Follicular lymphoma
     Dosage: 800 MG, QD
     Dates: start: 20201216, end: 20220309
  4. UMBRALISIB [Suspect]
     Active Substance: UMBRALISIB
     Indication: Nodal marginal zone B-cell lymphoma

REACTIONS (1)
  - Acute kidney injury [Recovered/Resolved]

NARRATIVE: CASE EVENT DATE: 20220318
